FAERS Safety Report 19164162 (Version 1)
Quarter: 2021Q2

REPORT INFORMATION
  Report Type: Spontaneous
  Country: AR (occurrence: AR)
  Receive Date: 20210421
  Receipt Date: 20210421
  Transmission Date: 20210717
  Serious: Yes (Other)
  Sender: FDA-Public Use
  Company Number: AR-PFIZER INC-2021381921

PATIENT
  Age: 77 Year
  Sex: Female

DRUGS (2)
  1. LETROZOLE. [Concomitant]
     Active Substance: LETROZOLE
     Dosage: UNK, DAILY
  2. IBRANCE [Suspect]
     Active Substance: PALBOCICLIB
     Indication: BREAST CANCER METASTATIC
     Dosage: 100 MG, CYCLIC (DAILY 3X1 SCHEME)
     Dates: start: 20190515, end: 202103

REACTIONS (2)
  - Bronchitis [Not Recovered/Not Resolved]
  - Iron deficiency [Not Recovered/Not Resolved]

NARRATIVE: CASE EVENT DATE: 202103
